FAERS Safety Report 4643752-8 (Version None)
Quarter: 2005Q2

REPORT INFORMATION
  Report Type: 
  Country: None (occurrence: None)
  Receive Date: 20050425
  Receipt Date: 20050401
  Transmission Date: 20051028
  Serious: Yes (Other)
  Sender: FDA-Public Use
  Company Number: PHEH2005US03904

PATIENT
  Age: 86 Year
  Sex: Female
  Weight: 59 kg

DRUGS (2)
  1. CYMBALTA [Suspect]
  2. ENABLEX [Suspect]
     Indication: HYPERTONIC BLADDER
     Dosage: 7.5 MG, QD
     Route: 048
     Dates: start: 20050302, end: 20050330

REACTIONS (2)
  - FAECAL DISIMPACTION [None]
  - FAECALOMA [None]
